FAERS Safety Report 18538963 (Version 1)
Quarter: 2020Q4

REPORT INFORMATION
  Report Type: Spontaneous
  Country: RO (occurrence: RO)
  Receive Date: 20201124
  Receipt Date: 20201124
  Transmission Date: 20210114
  Serious: Yes (Hospitalization, Other)
  Sender: FDA-Public Use
  Company Number: RO-ASTRAZENECA-2020SF52675

PATIENT
  Age: 69 Year
  Sex: Male

DRUGS (8)
  1. CONTROLOC [Concomitant]
     Active Substance: PANTOPRAZOLE SODIUM
  2. BRILIQUE [Suspect]
     Active Substance: TICAGRELOR
     Indication: STENT PLACEMENT
     Route: 048
  3. SORTIS [Concomitant]
     Active Substance: ATORVASTATIN
  4. CONCOR [Concomitant]
     Active Substance: BISOPROLOL FUMARATE
  5. BRILIQUE [Suspect]
     Active Substance: TICAGRELOR
     Indication: ACUTE MYOCARDIAL INFARCTION
     Route: 048
  6. ASA [Concomitant]
     Active Substance: ASPIRIN
     Indication: ACUTE MYOCARDIAL INFARCTION
     Route: 065
  7. PRESTARIUM [Concomitant]
     Active Substance: PERINDOPRIL
  8. ASA [Concomitant]
     Active Substance: ASPIRIN
     Indication: STENT PLACEMENT
     Route: 065

REACTIONS (1)
  - COVID-19 [Recovering/Resolving]
